FAERS Safety Report 7258161-5 (Version None)
Quarter: 2011Q1

REPORT INFORMATION
  Report Type: 
  Country: None (occurrence: None)
  Receive Date: 20110129
  Receipt Date: 20100706
  Transmission Date: 20110831
  Serious: No
  Sender: FDA-Public Use
  Company Number: US-ABBOTT-10P-163-0655737-00

PATIENT
  Age: 55 Year
  Sex: Female

DRUGS (3)
  1. VIT D [Concomitant]
     Indication: PRODUCT USED FOR UNKNOWN INDICATION
  2. HUMIRA [Suspect]
     Indication: RHEUMATOID ARTHRITIS
     Dates: start: 20100614
  3. LAMACIL [Concomitant]
     Indication: ONYCHOMYCOSIS

REACTIONS (1)
  - INJECTION SITE PAIN [None]
